FAERS Safety Report 9094121 (Version 1)
Quarter: 2013Q1

REPORT INFORMATION
  Report Type: Spontaneous
  Country: US (occurrence: None)
  Receive Date: 20130122
  Receipt Date: 20130122
  Transmission Date: 20140127
  Serious: Yes (Other)
  Sender: FDA-Public Use
  Company Number: JPI-P-026259

PATIENT
  Age: 40 Year
  Sex: Male
  Weight: 68.04 kg

DRUGS (11)
  1. XYREM  (500 MILLIGRAM/MILLILITERS, SOLUTION)(SODIUM OXYBATE) [Suspect]
     Indication: FIBROMYALGIA
     Dosage: (3 GM, 2 IN 1 D)
     Route: 048
     Dates: start: 20110629, end: 20110801
  2. XYREM  (500 MILLIGRAM/MILLILITERS, SOLUTION)(SODIUM OXYBATE) [Suspect]
     Indication: SLEEP APNOEA SYNDROME
     Dosage: (3 GM, 2 IN 1 D)
     Route: 048
     Dates: start: 20110629, end: 20110801
  3. LUVOX CR [Suspect]
     Indication: OBSESSIVE-COMPULSIVE DISORDER
     Route: 048
  4. LUVOX CR [Suspect]
     Indication: DEPRESSION
     Route: 048
  5. LYRICA  (PREGABALIN) [Concomitant]
  6. PREVACID (LANSOPRAZOLE) [Concomitant]
  7. PEROOCET (OXYCODONE HYDROCHLORIDE AND ACETAMINOPHEN) [Concomitant]
  8. KADIAN (MORPHINE SULFATE) [Concomitant]
  9. LIVALO (PITAVASTATIN CALCIUM) [Concomitant]
  10. XANAX (ALPRAZOLAM) [Concomitant]
  11. CLARINEX (DESLORATADINE) [Concomitant]

REACTIONS (13)
  - Hepatic steatosis [None]
  - Weight increased [None]
  - Fatigue [None]
  - Poor quality sleep [None]
  - Rheumatoid arthritis [None]
  - Fatigue [None]
  - Blood testosterone decreased [None]
  - Blood cholesterol increased [None]
  - Blood triglycerides increased [None]
  - Somnolence [None]
  - Swelling [None]
  - Skin irritation [None]
  - Abdominal pain [None]
